FAERS Safety Report 4645992-0 (Version None)
Quarter: 2005Q2

REPORT INFORMATION
  Report Type: 
  Country: None (occurrence: None)
  Receive Date: 20050425
  Receipt Date: 20050412
  Transmission Date: 20051028
  Serious: Yes (Life-Threatening, Other)
  Sender: FDA-Public Use
  Company Number: HQWYE055415APR05

PATIENT
  Sex: Female

DRUGS (1)
  1. PREMARIN [Suspect]
     Indication: VAGINAL HAEMORRHAGE
     Dosage: ORAL
     Route: 048

REACTIONS (3)
  - DRUG HYPERSENSITIVITY [None]
  - INJURY ASPHYXIATION [None]
  - URTICARIA [None]
